FAERS Safety Report 17793325 (Version 1)
Quarter: 2020Q2

REPORT INFORMATION
  Report Type: Report from Study
  Country: CA (occurrence: CA)
  Receive Date: 20200515
  Receipt Date: 20200515
  Transmission Date: 20200714
  Serious: Yes (Hospitalization, Other)
  Sender: FDA-Public Use
  Company Number: PHHY2018CA014276

PATIENT
  Age: 92 Year
  Sex: Female

DRUGS (5)
  1. OCTREOTIDE. [Suspect]
     Active Substance: OCTREOTIDE
     Indication: DIARRHOEA
     Dosage: 100 UG, TID
     Route: 058
  2. SANDOSTATIN LAR DEPOT [Suspect]
     Active Substance: OCTREOTIDE ACETATE
     Dosage: 30 MG, Q2W
     Route: 030
  3. SANDOSTATIN LAR DEPOT [Suspect]
     Active Substance: OCTREOTIDE ACETATE
     Indication: CARCINOID TUMOUR
     Dosage: 40 MG, Q3W
     Route: 030
     Dates: start: 20161217
  4. SANDOSTATIN LAR DEPOT [Suspect]
     Active Substance: OCTREOTIDE ACETATE
     Dosage: 30 MG, Q2W
     Route: 030
  5. SANDOSTATIN [Suspect]
     Active Substance: OCTREOTIDE ACETATE
     Indication: CARCINOID TUMOUR
     Dosage: UNK, QD
     Route: 058
     Dates: start: 20161205, end: 20161205

REACTIONS (10)
  - Injection site pain [Unknown]
  - Hip fracture [Unknown]
  - Pollakiuria [Unknown]
  - Inappropriate schedule of product administration [Unknown]
  - Abdominal pain lower [Not Recovered/Not Resolved]
  - Fall [Unknown]
  - Blood pressure systolic increased [Recovering/Resolving]
  - Anxiety [Unknown]
  - Injection site bruising [Unknown]
  - Injection site swelling [Not Recovered/Not Resolved]

NARRATIVE: CASE EVENT DATE: 2018
